FAERS Safety Report 15747019 (Version 2)
Quarter: 2018Q4

REPORT INFORMATION
  Report Type: Spontaneous
  Country: CH (occurrence: CH)
  Receive Date: 20181220
  Receipt Date: 20181231
  Transmission Date: 20190205
  Serious: Yes (Hospitalization)
  Sender: FDA-Public Use
  Company Number: CH-009507513-1812CHE009733

PATIENT
  Age: 70 Year
  Sex: Male
  Weight: 72.5 kg

DRUGS (9)
  1. REMERON [Suspect]
     Active Substance: MIRTAZAPINE
     Dosage: IT WAS NOT KNOWN HOW LONG THE MEDICATION WAS TAKEN FOR
     Route: 048
     Dates: end: 20181030
  2. DAFALGAN [Suspect]
     Active Substance: ACETAMINOPHEN
     Dosage: THE PATIENT TOOK UP TO 3 TABLETS OF 500 MG PER DAY AS NECESSARY.; AS NECESSARY
     Route: 048
     Dates: start: 20181011, end: 20181030
  3. CUBICIN [Concomitant]
     Active Substance: DAPTOMYCIN
     Dosage: 850 MILLIGRAM, QD
     Route: 041
  4. DE URSIL [Concomitant]
     Dosage: 300 MILLIGRAM, BID
     Route: 048
  5. TIROSINT [Concomitant]
     Active Substance: LEVOTHYROXINE SODIUM
     Dosage: 125 MICROGRAM, QD
     Route: 048
  6. PANTOZOL [Concomitant]
     Active Substance: PANTOPRAZOLE SODIUM
     Dosage: MEDICATION REPLACED WITH RANITIDIN MEPHA 300 MG/DAY DURING THE STAY
     Route: 048
  7. NEBILET [Concomitant]
     Active Substance: NEBIVOLOL
     Dosage: 5 MILLIGRAM, QD
     Route: 048
  8. CARDURA [Concomitant]
     Active Substance: DOXAZOSIN MESYLATE
     Dosage: 4 MILLIGRAM, QD
     Route: 048
  9. ROCEPHIN [Concomitant]
     Active Substance: CEFTRIAXONE SODIUM
     Dosage: 2 GRAM, BID
     Route: 041

REACTIONS (3)
  - Drug-induced liver injury [Recovering/Resolving]
  - Cholestasis [Recovering/Resolving]
  - Jaundice [Recovering/Resolving]

NARRATIVE: CASE EVENT DATE: 20181025
